FAERS Safety Report 23949117 (Version 1)
Quarter: 2024Q2

REPORT INFORMATION
  Report Type: Report from Study
  Country: US (occurrence: US)
  Receive Date: 20240607
  Receipt Date: 20240607
  Transmission Date: 20240716
  Serious: Yes (Death, Hospitalization, Other)
  Sender: FDA-Public Use
  Company Number: US-ACADIA PHARMACEUTICALS INC.-ACA-2024-PIM-001022

PATIENT
  Sex: Male

DRUGS (13)
  1. NUPLAZID [Suspect]
     Active Substance: PIMAVANSERIN TARTRATE
     Indication: Parkinson^s disease psychosis
     Dosage: 34 MILLIGRAM, QD
     Route: 048
  2. APOKYN [Concomitant]
     Active Substance: APOMORPHINE HYDROCHLORIDE
     Dosage: INJECT 0.3ML SUBCUTANEOUSLY PER DOSE
     Dates: start: 20240326
  3. ASPIRIN [Concomitant]
     Active Substance: ASPIRIN
     Dosage: 1 TABLET BY ORAL ROUTE DAILY
     Route: 048
     Dates: start: 20240328
  4. BACLOFEN [Concomitant]
     Active Substance: BACLOFEN
     Dosage: 20 MILLIGRAM, TID
     Dates: start: 20240328
  5. FLOMAX [Concomitant]
     Active Substance: TAMSULOSIN HYDROCHLORIDE
     Dosage: 0.4 MILLIGRAM
  6. GOCOVRI [Concomitant]
     Active Substance: AMANTADINE
     Dosage: 2 CAPSULES BY ORAL ROUE AT BEDTIME
     Route: 048
     Dates: start: 20240326
  7. INBRIJA [Concomitant]
     Active Substance: LEVODOPA
     Dosage: 2 CAPSULES BY INHALATION ROUTE
  8. METHOCARBAMOL [Concomitant]
     Active Substance: METHOCARBAMOL
     Dosage: 500 MILLIGRAM, QID
     Route: 048
  9. REMERON [Concomitant]
     Active Substance: MIRTAZAPINE
     Dosage: 15 MILLIGRAM, QD
     Route: 048
     Dates: start: 20230706
  10. ROPINIROLE [Concomitant]
     Active Substance: ROPINIROLE
     Dosage: 5 MILLIGRAM, TID
     Route: 048
  11. RYTARY [Concomitant]
     Active Substance: CARBIDOPA\LEVODOPA
     Dosage: 48.75MG-195MG
     Route: 048
     Dates: start: 20240326
  12. RYTARY [Concomitant]
     Active Substance: CARBIDOPA\LEVODOPA
     Dosage: 61.25MG-245MG CAPSULE 5 TIMES PER DAY
     Route: 048
     Dates: start: 20240326
  13. TOPAMAX [Concomitant]
     Active Substance: TOPIRAMATE
     Dosage: 50 MILLIGRAM, BID
     Route: 048
     Dates: start: 20240326

REACTIONS (2)
  - Death [Fatal]
  - Hospitalisation [Unknown]
